FAERS Safety Report 6922103-X (Version None)
Quarter: 2010Q3

REPORT INFORMATION
  Report Type: 
  Country: None (occurrence: None)
  Receive Date: 20100812
  Receipt Date: 20100802
  Transmission Date: 20110219
  Serious: Yes (Hospitalization)
  Sender: FDA-Public Use
  Company Number: US-BAYER-201029440NA

PATIENT
  Age: 47 Year
  Sex: Male

DRUGS (1)
  1. BETASERON [Suspect]
     Indication: MULTIPLE SCLEROSIS
     Dosage: TOTAL DAILY DOSE: 8 MIU
     Route: 058
     Dates: start: 19940106, end: 20100201

REACTIONS (8)
  - COLITIS [None]
  - COLITIS ULCERATIVE [None]
  - COLLAPSE OF LUNG [None]
  - GAIT DISTURBANCE [None]
  - RECTAL HAEMORRHAGE [None]
  - ROAD TRAFFIC ACCIDENT [None]
  - STAPHYLOCOCCAL INFECTION [None]
  - URINARY RETENTION [None]
